FAERS Safety Report 6855934-5 (Version None)
Quarter: 2010Q3

REPORT INFORMATION
  Report Type: 
  Country: None (occurrence: None)
  Receive Date: 20100716
  Receipt Date: 20100716
  Transmission Date: 20110219
  Serious: Yes (Other)
  Sender: FDA-Public Use
  Company Number: None

PATIENT
  Age: 54 Year
  Sex: Male
  Weight: 87.5442 kg

DRUGS (2)
  1. PAROXETINE HCL [Suspect]
     Indication: DEPRESSION
     Dosage: * 1/2 TAB/FULL TAB ONCE NIGHTLY ORAL
     Route: 048
     Dates: start: 20100608, end: 20100620
  2. SINEMET [Concomitant]

REACTIONS (3)
  - MYDRIASIS [None]
  - PHOTOPHOBIA [None]
  - SUICIDAL IDEATION [None]
